FAERS Safety Report 8759179 (Version 3)
Quarter: 2013Q4

REPORT INFORMATION
  Report Type: Spontaneous
  Country: US (occurrence: US)
  Receive Date: 20120829
  Receipt Date: 20131101
  Transmission Date: 20140711
  Serious: No
  Sender: FDA-Public Use
  Company Number: US-009507513-1207USA001751

PATIENT
  Age: 19 Year
  Sex: Female
  Weight: 101.59 kg

DRUGS (1)
  1. IMPLANON [Suspect]
     Indication: CONTRACEPTION
     Dosage: UNK
     Route: 059
     Dates: start: 20111020

REACTIONS (2)
  - Menstruation irregular [Not Recovered/Not Resolved]
  - Device breakage [Unknown]
